FAERS Safety Report 10573334 (Version 1)
Quarter: 2014Q4

REPORT INFORMATION
  Report Type: Spontaneous
  Country: MY (occurrence: None)
  Receive Date: 20141030
  Receipt Date: 20141030
  Transmission Date: 20150529
  Serious: Yes (Other)
  Sender: FDA-Public Use
  Company Number: PHHY2014MY050868

PATIENT
  Age: 60 Year
  Sex: Female

DRUGS (8)
  1. AMLODIPINE [Concomitant]
     Active Substance: AMLODIPINE BESYLATE
  2. METFORMIN [Concomitant]
     Active Substance: METFORMIN HYDROCHLORIDE
  3. NEUROBINE (CYANOCOBALMIN, PYRIDOXINE HYDROCHLORIDE, THIAMINE MONONITRATE)TABLET [Concomitant]
  4. PROPANOLOL (PROPANOLOL) [Concomitant]
  5. SEBIVO [Suspect]
     Active Substance: TELBIVUDINE
     Indication: HEPATITIS
     Route: 048
     Dates: start: 20110809, end: 20140318
  6. ESSENTIAL OILS NOS (ESSENTIAL OILS NOS) [Concomitant]
  7. PERINDOPRIL (PERINDOPRIL) [Concomitant]
     Active Substance: PERINDOPRIL
  8. ATORVASTATIN (ATORVASTATIN CALCIUM) [Concomitant]

REACTIONS (3)
  - Dysstasia [None]
  - Muscular weakness [None]
  - Immune-mediated necrotising myopathy [None]

NARRATIVE: CASE EVENT DATE: 2012
